FAERS Safety Report 5584294-5 (Version None)
Quarter: 2008Q1

REPORT INFORMATION
  Report Type: 
  Country: None (occurrence: None)
  Receive Date: 20080108
  Receipt Date: 20080104
  Transmission Date: 20080703
  Serious: Yes (Hospitalization)
  Sender: FDA-Public Use
  Company Number: B0501894A

PATIENT
  Age: 80 Year
  Sex: Female

DRUGS (5)
  1. CARVEDILOL [Suspect]
     Dosage: 6.3G PER DAY
     Route: 065
     Dates: start: 20070823, end: 20070828
  2. VERAPAMIL [Concomitant]
     Route: 065
  3. DIGOXIN [Concomitant]
     Route: 065
  4. WARFARIN SODIUM [Concomitant]
     Route: 065
  5. METFORMIN HCL [Concomitant]
     Route: 065

REACTIONS (1)
  - MYALGIA [None]
